FAERS Safety Report 10589571 (Version 2)
Quarter: 2014Q4

REPORT INFORMATION
  Report Type: Spontaneous
  Country: FR (occurrence: FR)
  Receive Date: 20141118
  Receipt Date: 20141118
  Transmission Date: 20150529
  Serious: Yes (Other)
  Sender: FDA-Public Use
  Company Number: FR-TEVA-459636ISR

PATIENT
  Age: 66 Year
  Sex: Male
  Weight: 85 kg

DRUGS (6)
  1. HEMIGOXINE [Concomitant]
     Active Substance: DIGOXIN
     Route: 048
  2. AIROMIR AUTOHALER [Suspect]
     Active Substance: ALBUTEROL SULFATE
     Indication: ASTHMA
     Dosage: 4 DOSAGE FORMS DAILY;
     Route: 055
     Dates: start: 200302
  3. PREVISCAN [Concomitant]
     Active Substance: FLUINDIONE
     Dosage: 1 DOSAGE FORMS DAILY; 3/4 TABLET 1 DAY 1/2 TABLET 1 DAY
     Route: 048
  4. AMIODARONE [Concomitant]
     Active Substance: AMIODARONE
     Dosage: 1 DOSAGE FORMS DAILY; ADMINISTERED 5 DAYS PER WEEK
     Route: 048
  5. PULMICORT TURBUHALER [Concomitant]
     Active Substance: BUDESONIDE
     Indication: ASTHMA
     Dosage: 6 DOSAGE FORMS DAILY;
     Route: 055
  6. SPIRONOLACTONE. [Concomitant]
     Active Substance: SPIRONOLACTONE
     Dosage: 25 MILLIGRAM DAILY;
     Route: 048

REACTIONS (3)
  - Off label use [Not Recovered/Not Resolved]
  - Bronchospasm [Recovered/Resolved]
  - Asthmatic crisis [Recovered/Resolved]

NARRATIVE: CASE EVENT DATE: 200302
